FAERS Safety Report 26027363 (Version 1)
Quarter: 2025Q4

REPORT INFORMATION
  Report Type: Spontaneous
  Country: US (occurrence: None)
  Receive Date: 20251111
  Receipt Date: 20251111
  Transmission Date: 20260117
  Serious: Yes (Other)
  Sender: FDA-CTU
  Company Number: None

PATIENT
  Age: 47 Year
  Sex: Female
  Weight: 49.9 kg

DRUGS (1)
  1. CABOMETYX [Suspect]
     Active Substance: CABOZANTINIB S-MALATE
     Indication: Renal cell carcinoma
     Dosage: FREQUENCY : DAILY;?
     Route: 048
     Dates: start: 20251017, end: 20251104

REACTIONS (6)
  - Constipation [None]
  - Haematochezia [None]
  - Flatulence [None]
  - Dyspepsia [None]
  - Oral mucosal blistering [None]
  - Ill-defined disorder [None]

NARRATIVE: CASE EVENT DATE: 20251111
